FAERS Safety Report 9897384 (Version 4)
Quarter: 2014Q1

REPORT INFORMATION
  Report Type: Report from Study
  Country: US (occurrence: US)
  Receive Date: 20140214
  Receipt Date: 20140306
  Transmission Date: 20141002
  Serious: Yes (Hospitalization)
  Sender: FDA-Public Use
  Company Number: US-JNJFOC-20140205777

PATIENT
  Age: 15 Year
  Sex: Female
  Weight: 49.2 kg

DRUGS (8)
  1. REMICADE [Suspect]
     Indication: CROHN^S DISEASE
     Route: 042
     Dates: start: 20100610, end: 20100622
  2. HUMIRA [Concomitant]
     Route: 065
  3. ALBUTEROL [Concomitant]
     Route: 065
  4. FERROUS FUMARATE [Concomitant]
     Route: 065
  5. COLAZAL [Concomitant]
     Route: 065
  6. PREDNISONE [Concomitant]
     Route: 065
  7. VIBRAMYCIN [Concomitant]
     Route: 065
  8. IMODIUM [Concomitant]
     Route: 065

REACTIONS (3)
  - Cholangitis sclerosing [Not Recovered/Not Resolved]
  - Hepatic fibrosis [Not Recovered/Not Resolved]
  - Iron deficiency anaemia [Not Recovered/Not Resolved]
